FAERS Safety Report 23400833 (Version 1)
Quarter: 2024Q1

REPORT INFORMATION
  Report Type: Spontaneous
  Country: US (occurrence: US)
  Receive Date: 20240115
  Receipt Date: 20240115
  Transmission Date: 20240409
  Serious: Yes (Other)
  Sender: FDA-Public Use
  Company Number: US-SA-SAC20240111001170

PATIENT
  Age: 29 Year
  Sex: Female
  Weight: 99.7 kg

DRUGS (1)
  1. DUPIXENT [Suspect]
     Active Substance: DUPILUMAB
     Indication: Dermatitis atopic
     Dosage: 300 MG, QOW
     Route: 058
     Dates: start: 20230823

REACTIONS (5)
  - Ectopic pregnancy [Unknown]
  - Nasopharyngitis [Not Recovered/Not Resolved]
  - Eczema [Not Recovered/Not Resolved]
  - Pain of skin [Unknown]
  - Exposure during pregnancy [Unknown]
